FAERS Safety Report 11655890 (Version 2)
Quarter: 2015Q4

REPORT INFORMATION
  Report Type: Report from Study
  Country: US (occurrence: US)
  Receive Date: 20151023
  Receipt Date: 20151216
  Transmission Date: 20160304
  Serious: Yes (Other)
  Sender: FDA-Public Use
  Company Number: US-AMGEN-USASL2015098614

PATIENT
  Age: 82 Year
  Sex: Female

DRUGS (1)
  1. KYPROLIS [Suspect]
     Active Substance: CARFILZOMIB
     Indication: PLASMA CELL MYELOMA
     Dosage: UNK UNK, Q2WK
     Route: 065

REACTIONS (11)
  - Hypotonia [Unknown]
  - Fatigue [Unknown]
  - Amnesia [Unknown]
  - Osteoporosis [Unknown]
  - Cardiac operation [Unknown]
  - Foot deformity [Unknown]
  - Headache [Unknown]
  - Localised infection [Unknown]
  - Feeling abnormal [Unknown]
  - Dizziness [Unknown]
  - Arthropathy [Unknown]

NARRATIVE: CASE EVENT DATE: 2015
